FAERS Safety Report 12120925 (Version 1)
Quarter: 2016Q1

REPORT INFORMATION
  Report Type: Spontaneous
  Country: US (occurrence: US)
  Receive Date: 20160226
  Receipt Date: 20160226
  Transmission Date: 20160526
  Serious: No
  Sender: FDA-Public Use
  Company Number: US-ALLERGAN-1202258US

PATIENT
  Sex: Female

DRUGS (1)
  1. REFRESH OPTIVE [Suspect]
     Active Substance: CARBOXYMETHYLCELLULOSE SODIUM\GLYCERIN
     Indication: DRY EYE
     Dosage: 1 GTT, Q6HR
     Route: 047
     Dates: start: 201202

REACTIONS (4)
  - Laryngitis [Recovered/Resolved]
  - Ocular hyperaemia [Recovering/Resolving]
  - Sinusitis [Recovered/Resolved]
  - Ocular discomfort [Recovered/Resolved]
